FAERS Safety Report 4961831-2 (Version None)
Quarter: 2006Q2

REPORT INFORMATION
  Report Type: 
  Country: None (occurrence: None)
  Receive Date: 20060404
  Receipt Date: 20060330
  Transmission Date: 20061013
  Serious: Yes (Hospitalization)
  Sender: FDA-Public Use
  Company Number: FR-GLAXOSMITHKLINE-B0418429A

PATIENT
  Age: 53 Year
  Sex: Male

DRUGS (4)
  1. AUGMENTIN '125' [Suspect]
     Dosage: 2G PER DAY
     Route: 048
     Dates: start: 20060301, end: 20060303
  2. DOLIPRANE [Suspect]
     Route: 048
     Dates: start: 20060301, end: 20060303
  3. EPIVIR [Concomitant]
     Indication: HIV INFECTION
     Route: 048
  4. VIRACEPT [Concomitant]
     Indication: HIV INFECTION
     Route: 048

REACTIONS (6)
  - ABDOMINAL PAIN UPPER [None]
  - LIPASE INCREASED [None]
  - NODULE [None]
  - PANCREATIC DUCT DILATATION [None]
  - PANCREATIC ENLARGEMENT [None]
  - PANCREATITIS ACUTE [None]
